FAERS Safety Report 7326406-9 (Version None)
Quarter: 2011Q1

REPORT INFORMATION
  Report Type: 
  Country: None (occurrence: None)
  Receive Date: 20110218
  Receipt Date: 20110210
  Transmission Date: 20110831
  Serious: Yes (Hospitalization, Other)
  Sender: FDA-Public Use
  Company Number: 020413

PATIENT
  Sex: Female
  Weight: 126.4 kg

DRUGS (11)
  1. GLIMEPIRIDE [Concomitant]
  2. SKELAXIN [Concomitant]
  3. METHOTREXATE [Concomitant]
  4. OXAPROZIN [Concomitant]
  5. ALEVE [Concomitant]
  6. CERTOLIZUMAB PEGOL [Suspect]
     Indication: RHEUMATOID ARTHRITIS
     Dosage: (400 MG 1X/2 WEEKS SUBCUTANEOUS)
     Route: 058
     Dates: start: 20100101, end: 20100916
  7. FOLIC ACID [Concomitant]
  8. METFORMIN HCL [Concomitant]
  9. PERCOCET [Concomitant]
  10. DAYPRO [Concomitant]
  11. LYRICA [Concomitant]

REACTIONS (22)
  - SINUS TACHYCARDIA [None]
  - BLOOD CREATINE PHOSPHOKINASE INCREASED [None]
  - PULMONARY ALVEOLAR HAEMORRHAGE [None]
  - CONDITION AGGRAVATED [None]
  - PNEUMONIA [None]
  - BLOOD CALCIUM DECREASED [None]
  - BLOOD ALBUMIN DECREASED [None]
  - BLOOD SODIUM DECREASED [None]
  - BLOOD GLUCOSE INCREASED [None]
  - BLOOD UREA NITROGEN/CREATININE RATIO INCREASED [None]
  - CHRONIC OBSTRUCTIVE PULMONARY DISEASE [None]
  - LYMPHADENOPATHY [None]
  - URINARY TRACT INFECTION [None]
  - HYPERPLASIA [None]
  - PAIN [None]
  - RESPIRATORY ALKALOSIS [None]
  - ACUTE RESPIRATORY FAILURE [None]
  - HAEMOGLOBIN DECREASED [None]
  - BLOOD CREATININE DECREASED [None]
  - BLOOD PRESSURE SYSTOLIC INCREASED [None]
  - LUNG NEOPLASM [None]
  - HEADACHE [None]
